FAERS Safety Report 14127508 (Version 6)
Quarter: 2018Q2

REPORT INFORMATION
  Report Type: Report from Study
  Country: BR (occurrence: BR)
  Receive Date: 20171026
  Receipt Date: 20180507
  Transmission Date: 20180711
  Serious: Yes (Death, Hospitalization)
  Sender: FDA-Public Use
  Company Number: BR-UCBSA-2017042491

PATIENT
  Age: 31 Year
  Sex: Male
  Weight: 44 kg

DRUGS (3)
  1. OMEPRAZOLE. [Concomitant]
     Active Substance: OMEPRAZOLE
     Indication: GASTRITIS
     Dosage: 1 TABLET/DAY, ONCE DAILY (QD)
     Route: 048
     Dates: start: 201801, end: 201801
  2. ISONIAZIDE [Concomitant]
     Active Substance: ISONIAZID
     Indication: LUNG DISORDER
     Dosage: 3 TABLETS IN THE MORNING, ONCE DAILY (QD)
     Route: 048
     Dates: start: 201705
  3. CERTOLIZUMAB PEGOL [Suspect]
     Active Substance: CERTOLIZUMAB PEGOL
     Indication: CROHN^S DISEASE
     Dosage: 400 MG, MONTHLY (QM)
     Dates: start: 201706, end: 2017

REACTIONS (2)
  - Post procedural infection [Not Recovered/Not Resolved]
  - Death [Fatal]

NARRATIVE: CASE EVENT DATE: 20171007
